FAERS Safety Report 11176977 (Version 1)
Quarter: 2015Q2

REPORT INFORMATION
  Report Type: Spontaneous
  Country: US (occurrence: None)
  Receive Date: 20150609
  Receipt Date: 20150609
  Transmission Date: 20150821
  Serious: Yes (Hospitalization)
  Sender: FDA-Public Use
  Company Number: None

PATIENT
  Age: 65 Year
  Sex: Female
  Weight: 80.9 kg

DRUGS (1)
  1. BENDAMUSTINE [Suspect]
     Active Substance: BENDAMUSTINE
     Indication: AMYLOIDOSIS
     Dosage: 90NG/M2 DAYS 1, 2
     Dates: start: 20150604

REACTIONS (4)
  - Cerebral haematoma [None]
  - Aphasia [None]
  - Amnesia [None]
  - Mental status changes [None]
